FAERS Safety Report 24652641 (Version 1)
Quarter: 2024Q4

REPORT INFORMATION
  Report Type: Spontaneous
  Country: US (occurrence: None)
  Receive Date: 20241122
  Receipt Date: 20241122
  Transmission Date: 20250114
  Serious: Yes (Hospitalization)
  Sender: Public
  Company Number: None

PATIENT
  Age: 70 Year
  Sex: Male
  Weight: 105 kg

DRUGS (1)
  1. APIXABAN [Suspect]
     Active Substance: APIXABAN
     Indication: Atrial fibrillation
     Dosage: 5.00 MG TWICE A DAY ORAL
     Route: 048

REACTIONS (6)
  - Haematoma [None]
  - Wound necrosis [None]
  - Wound infection [None]
  - Haemoglobin decreased [None]
  - Fall [None]
  - Cerebellar infarction [None]

NARRATIVE: CASE EVENT DATE: 20241108
